FAERS Safety Report 11286270 (Version 1)
Quarter: 2015Q3

REPORT INFORMATION
  Report Type: Spontaneous
  Country: US (occurrence: US)
  Receive Date: 20150721
  Receipt Date: 20150721
  Transmission Date: 20151125
  Serious: No
  Sender: FDA-Public Use
  Company Number: US-UNITED THERAPEUTICS-UNT-2015-001317

PATIENT
  Age: 65 Year
  Sex: Female
  Weight: 89.8 kg

DRUGS (3)
  1. REVATIO [Concomitant]
     Active Substance: SILDENAFIL CITRATE
     Indication: PRODUCT USED FOR UNKNOWN INDICATION
  2. TYVASO [Suspect]
     Active Substance: TREPROSTINIL
     Indication: PULMONARY HYPERTENSION
     Dosage: 18-54 MICROGRAMS, QID
     Dates: start: 20140630
  3. TYVASO [Suspect]
     Active Substance: TREPROSTINIL
     Dosage: 18-54 MICROGRAMS, QID
     Dates: start: 20150202

REACTIONS (10)
  - Rhinorrhoea [Recovered/Resolved]
  - Drug dose omission [Unknown]
  - Cough [Recovered/Resolved]
  - Viral infection [Unknown]
  - Nasopharyngitis [Recovered/Resolved]
  - Treatment noncompliance [Unknown]
  - Epistaxis [Recovered/Resolved]
  - Headache [Unknown]
  - Oropharyngeal pain [Recovered/Resolved]
  - Vomiting [Recovered/Resolved]

NARRATIVE: CASE EVENT DATE: 20140630
